FAERS Safety Report 6278379-8 (Version None)
Quarter: 2009Q3

REPORT INFORMATION
  Report Type: 
  Country: None (occurrence: None)
  Receive Date: 20090720
  Receipt Date: 20090720
  Transmission Date: 20100115
  Serious: Yes (Hospitalization)
  Sender: FDA-Public Use
  Company Number: None

PATIENT
  Age: 55 Year
  Sex: Male
  Weight: 68.0396 kg

DRUGS (1)
  1. INDOMETHACIN [Suspect]
     Indication: ARTHRALGIA
     Dosage: 50 MG. T.I.D. PO
     Route: 048
     Dates: start: 20080702, end: 20080704

REACTIONS (8)
  - ANXIETY [None]
  - DEPRESSION [None]
  - DIZZINESS [None]
  - HEADACHE [None]
  - HYPERTENSION [None]
  - INSOMNIA [None]
  - MENINGITIS [None]
  - WEIGHT INCREASED [None]
